APPROVED DRUG PRODUCT: FINASTERIDE
Active Ingredient: FINASTERIDE
Strength: 5MG
Dosage Form/Route: TABLET;ORAL
Application: A076340 | Product #001
Applicant: IVAX PHARMACEUTICALS INC SUB TEVA PHARMACEUTICALS USA
Approved: Jun 19, 2006 | RLD: No | RS: No | Type: DISCN